FAERS Safety Report 14435594 (Version 1)
Quarter: 2018Q1

REPORT INFORMATION
  Report Type: Spontaneous
  Country: US (occurrence: US)
  Receive Date: 20180125
  Receipt Date: 20180125
  Transmission Date: 20180509
  Serious: No
  Sender: FDA-Public Use
  Company Number: US-UNITED THERAPEUTICS-UNT-2017-007989

PATIENT
  Sex: Female
  Weight: 89.8 kg

DRUGS (3)
  1. REMODULIN [Suspect]
     Active Substance: TREPROSTINIL
     Indication: PULMONARY ARTERIAL HYPERTENSION
     Dosage: 0.034 ?G/KG, CONTINUING
     Route: 058
     Dates: start: 20050310
  2. OPSUMIT [Concomitant]
     Active Substance: MACITENTAN
     Indication: PRODUCT USED FOR UNKNOWN INDICATION
  3. ADCIRCA [Concomitant]
     Active Substance: TADALAFIL
     Indication: PRODUCT USED FOR UNKNOWN INDICATION

REACTIONS (10)
  - Pain in jaw [Unknown]
  - Infusion site warmth [Unknown]
  - Infusion site mass [Unknown]
  - Gingival swelling [Not Recovered/Not Resolved]
  - Root canal infection [Unknown]
  - Infusion site erythema [Unknown]
  - Gingivitis [Unknown]
  - Tooth infection [Unknown]
  - Infusion site streaking [Recovering/Resolving]
  - Infusion site induration [Unknown]
